FAERS Safety Report 25522395 (Version 1)
Quarter: 2025Q3

REPORT INFORMATION
  Report Type: Report from Study
  Country: CA (occurrence: CA)
  Receive Date: 20250707
  Receipt Date: 20250707
  Transmission Date: 20251021
  Serious: Yes (Hospitalization)
  Sender: ASTELLAS
  Company Number: CA-SEATTLE GENETICS-2022SGN09147

PATIENT
  Age: 73 Year
  Sex: Male

DRUGS (1)
  1. ENFORTUMAB VEDOTIN-EJFV [Suspect]
     Active Substance: ENFORTUMAB VEDOTIN-EJFV
     Indication: Transitional cell carcinoma
     Route: 065
     Dates: end: 20220926

REACTIONS (7)
  - Palpitations [Unknown]
  - Dermatitis allergic [Unknown]
  - Nausea [Not Recovered/Not Resolved]
  - Appetite disorder [Unknown]
  - Erythema [Not Recovered/Not Resolved]
  - Vomiting [Unknown]
  - Decreased appetite [Unknown]

NARRATIVE: CASE EVENT DATE: 20220922
